FAERS Safety Report 19250813 (Version 2)
Quarter: 2021Q2

REPORT INFORMATION
  Report Type: Spontaneous
  Country: JP (occurrence: JP)
  Receive Date: 20210513
  Receipt Date: 20210614
  Transmission Date: 20210717
  Serious: Yes (Other)
  Sender: FDA-Public Use
  Company Number: JP-AMGEN-JPNSP2020112885

PATIENT
  Age: 77 Year
  Sex: Female
  Weight: 60 kg

DRUGS (48)
  1. ROCALTROL [Concomitant]
     Active Substance: CALCITRIOL
     Dosage: 0.5 MICROGRAM, 2 TIMES/WK
     Route: 042
     Dates: start: 20190201, end: 20190415
  2. ROCALTROL [Concomitant]
     Active Substance: CALCITRIOL
     Dosage: 0.5 MICROGRAM, QWK
     Route: 042
     Dates: start: 20200428, end: 20200721
  3. ROCALTROL [Concomitant]
     Active Substance: CALCITRIOL
     Dosage: 0.5 MICROGRAM, 3 TIMES/WK
     Route: 042
     Dates: start: 20200728, end: 20200912
  4. FESIN [SACCHARATED IRON OXIDE] [Concomitant]
     Active Substance: IRON SUCROSE
     Dosage: 80 MILLIGRAM, QWK
     Route: 042
     Dates: start: 20200815, end: 20200825
  5. EPOGIN [Concomitant]
     Active Substance: ERYTHROPOIETIN
     Dosage: 3750 INTERNATIONAL UNIT, QWK
     Route: 042
     Dates: start: 20200711, end: 20200723
  6. EPOGIN [Concomitant]
     Active Substance: ERYTHROPOIETIN
     Dosage: 6000 INTERNATIONAL UNIT, QWK
     Route: 042
     Dates: start: 20200725, end: 20200813
  7. PARSABIV [Suspect]
     Active Substance: ETELCALCETIDE HYDROCHLORIDE
     Dosage: 2.5 MILLIGRAM, 3 TIMES/WK
     Route: 010
     Dates: start: 20200307, end: 20200912
  8. ROCALTROL [Concomitant]
     Active Substance: CALCITRIOL
     Dosage: 1 MICROGRAM, 3 TIMES/WK
     Route: 042
     Dates: start: 20190417, end: 20190529
  9. FESIN [SACCHARATED IRON OXIDE] [Concomitant]
     Active Substance: IRON SUCROSE
     Dosage: 80 MILLIGRAM, QWK
     Route: 042
     Dates: start: 20190412, end: 20190429
  10. FESIN [SACCHARATED IRON OXIDE] [Concomitant]
     Active Substance: IRON SUCROSE
     Dosage: 80 MILLIGRAM, QWK
     Route: 042
     Dates: start: 20191214, end: 20191230
  11. EPOGIN [Concomitant]
     Active Substance: ERYTHROPOIETIN
     Dosage: 3000 INTERNATIONAL UNIT, QWK
     Route: 042
     Dates: start: 20190227, end: 20190325
  12. EPOGIN [Concomitant]
     Active Substance: ERYTHROPOIETIN
     Dosage: 6750 INTERNATIONAL UNIT, QWK
     Route: 042
     Dates: start: 20201107, end: 20201119
  13. ROCALTROL [Concomitant]
     Active Substance: CALCITRIOL
     Dosage: 0.5 MICROGRAM, 3 TIMES/WK
     Route: 042
     Dates: start: 20201215
  14. FESIN [SACCHARATED IRON OXIDE] [Concomitant]
     Active Substance: IRON SUCROSE
     Dosage: 80 MILLIGRAM, QWK
     Route: 042
     Dates: end: 20181119
  15. FESIN [SACCHARATED IRON OXIDE] [Concomitant]
     Active Substance: IRON SUCROSE
     Dosage: 80 MILLIGRAM, QWK
     Route: 042
     Dates: start: 20201107, end: 20201117
  16. EPOGIN [Concomitant]
     Active Substance: ERYTHROPOIETIN
     Dosage: 2250 INTERNATIONAL UNIT, QWK
     Route: 042
     Dates: end: 20181210
  17. EPOGIN [Concomitant]
     Active Substance: ERYTHROPOIETIN
     Dosage: 1500 INTERNATIONAL UNIT, QWK
     Route: 042
     Dates: start: 20210105, end: 20210123
  18. EPOGIN [Concomitant]
     Active Substance: ERYTHROPOIETIN
     Dosage: 750 INTERNATIONAL UNIT, QWK
     Route: 042
     Dates: start: 20210126, end: 20210216
  19. ROCALTROL [Concomitant]
     Active Substance: CALCITRIOL
     Indication: HYPERPARATHYROIDISM SECONDARY
     Dosage: 1 MICROGRAM, 3 TIMES/WK
     Route: 042
     Dates: start: 20181019, end: 20190130
  20. ROCALTROL [Concomitant]
     Active Substance: CALCITRIOL
     Dosage: 0.5 MICROGRAM, 2 TIMES/WK
     Route: 042
     Dates: start: 20191026, end: 20200303
  21. FESIN [SACCHARATED IRON OXIDE] [Concomitant]
     Active Substance: IRON SUCROSE
     Dosage: 80 MILLIGRAM, QWK
     Route: 042
     Dates: start: 20190517, end: 20190603
  22. FESIN [SACCHARATED IRON OXIDE] [Concomitant]
     Active Substance: IRON SUCROSE
     Dosage: 80 MILLIGRAM, QWK
     Route: 042
     Dates: start: 20201010, end: 20201103
  23. EPOGIN [Concomitant]
     Active Substance: ERYTHROPOIETIN
     Dosage: 2250 INTERNATIONAL UNIT, QWK
     Route: 042
     Dates: start: 20190213, end: 20190225
  24. PARSABIV [Suspect]
     Active Substance: ETELCALCETIDE HYDROCHLORIDE
     Indication: HYPERPARATHYROIDISM SECONDARY
     Dosage: 5 MILLIGRAM, 3 TIMES/WK
     Route: 010
     Dates: start: 20181205, end: 20181217
  25. ROCALTROL [Concomitant]
     Active Substance: CALCITRIOL
     Dosage: 1 MICROGRAM, QWK
     Route: 042
     Dates: start: 20190206, end: 20190410
  26. ROCALTROL [Concomitant]
     Active Substance: CALCITRIOL
     Dosage: 0.5 MICROGRAM, 2 TIMES/WK
     Route: 042
     Dates: start: 20190817, end: 20190924
  27. ROCALTROL [Concomitant]
     Active Substance: CALCITRIOL
     Dosage: 0.5 MICROGRAM, 3 TIMES/WK
     Route: 042
     Dates: start: 20190926, end: 20191024
  28. ROCALTROL [Concomitant]
     Active Substance: CALCITRIOL
     Dosage: 0.5 MICROGRAM, QWK
     Route: 042
     Dates: start: 20200915, end: 20201013
  29. FESIN [SACCHARATED IRON OXIDE] [Concomitant]
     Active Substance: IRON SUCROSE
     Dosage: 80 MILLIGRAM, QWK
     Route: 042
     Dates: start: 20181214, end: 20181224
  30. PARSABIV [Suspect]
     Active Substance: ETELCALCETIDE HYDROCHLORIDE
     Dosage: 2.5 MILLIGRAM, 3 TIMES/WK
     Route: 010
     Dates: start: 20190109, end: 20190408
  31. ROCALTROL [Concomitant]
     Active Substance: CALCITRIOL
     Dosage: 1 MICROGRAM, 3 TIMES/WK
     Route: 042
     Dates: start: 20190712, end: 20190813
  32. ROCALTROL [Concomitant]
     Active Substance: CALCITRIOL
     Dosage: 1 MICROGRAM, QWK
     Route: 042
     Dates: start: 20190815, end: 20190822
  33. ROCALTROL [Concomitant]
     Active Substance: CALCITRIOL
     Dosage: 1 MICROGRAM, QWK
     Route: 042
     Dates: start: 20191031, end: 20200305
  34. FESIN [SACCHARATED IRON OXIDE] [Concomitant]
     Active Substance: IRON SUCROSE
     Dosage: 80 MILLIGRAM, QWK
     Route: 042
     Dates: start: 20190712, end: 20190729
  35. EPOGIN [Concomitant]
     Active Substance: ERYTHROPOIETIN
     Dosage: 3000 INTERNATIONAL UNIT, QWK
     Route: 042
     Dates: start: 20201203, end: 20210102
  36. PARSABIV [Suspect]
     Active Substance: ETELCALCETIDE HYDROCHLORIDE
     Dosage: 2.5 MILLIGRAM, QWK
     Route: 010
     Dates: start: 20200915
  37. ROCALTROL [Concomitant]
     Active Substance: CALCITRIOL
     Dosage: 0.5 MICROGRAM, 2 TIMES/WK
     Route: 042
     Dates: start: 20201020, end: 20201212
  38. FESIN [SACCHARATED IRON OXIDE] [Concomitant]
     Active Substance: IRON SUCROSE
     Dosage: 80 MILLIGRAM, QWK
     Route: 042
     Dates: start: 20200613, end: 20200620
  39. FESIN [SACCHARATED IRON OXIDE] [Concomitant]
     Active Substance: IRON SUCROSE
     Dosage: 80 MILLIGRAM, QWK
     Route: 042
     Dates: start: 20210109, end: 20210209
  40. CALTAN [Concomitant]
     Active Substance: CALCIUM CARBONATE
     Dosage: 1500 MILLIGRAM, QD
     Route: 048
     Dates: start: 20190312
  41. EPOGIN [Concomitant]
     Active Substance: ERYTHROPOIETIN
     Dosage: 2250 INTERNATIONAL UNIT, QWK
     Route: 042
     Dates: start: 20200627, end: 20200709
  42. EPOGIN [Concomitant]
     Active Substance: ERYTHROPOIETIN
     Dosage: 8250 INTERNATIONAL UNIT, QWK
     Route: 042
     Dates: start: 20200815, end: 20201105
  43. PARSABIV [Suspect]
     Active Substance: ETELCALCETIDE HYDROCHLORIDE
     Dosage: 7.5 MILLIGRAM, 3 TIMES/WK
     Route: 010
     Dates: start: 20181219, end: 20190107
  44. PARSABIV [Suspect]
     Active Substance: ETELCALCETIDE HYDROCHLORIDE
     Dosage: 2.5 MILLIGRAM, 2 TIMES/WK
     Route: 010
     Dates: start: 20190412, end: 20190520
  45. ROCALTROL [Concomitant]
     Active Substance: CALCITRIOL
     Dosage: 0.5 MICROGRAM, 3 TIMES/WK
     Route: 042
     Dates: start: 20190531, end: 20190710
  46. ROCALTROL [Concomitant]
     Active Substance: CALCITRIOL
     Dosage: 0.5 MICROGRAM, 3 TIMES/WK
     Route: 042
     Dates: start: 20200307, end: 20200423
  47. EPOGIN [Concomitant]
     Active Substance: ERYTHROPOIETIN
     Dosage: 750 INTERNATIONAL UNIT, QWK
     Route: 042
     Dates: start: 20181217, end: 20190211
  48. EPOGIN [Concomitant]
     Active Substance: ERYTHROPOIETIN
     Dosage: 5250 INTERNATIONAL UNIT, QWK
     Route: 042
     Dates: start: 20201121, end: 20201201

REACTIONS (4)
  - Shunt stenosis [Recovered/Resolved]
  - Lumbar vertebral fracture [Recovering/Resolving]
  - Shunt stenosis [Recovered/Resolved]
  - Shunt stenosis [Recovered/Resolved]

NARRATIVE: CASE EVENT DATE: 20190725
